FAERS Safety Report 16591729 (Version 2)
Quarter: 2020Q2

REPORT INFORMATION
  Report Type: Spontaneous
  Country: US (occurrence: US)
  Receive Date: 20190718
  Receipt Date: 20200602
  Transmission Date: 20200713
  Serious: Yes (Other)
  Sender: FDA-Public Use
  Company Number: US-SA-2019SA195033

PATIENT

DRUGS (9)
  1. LISINOPRIL. [Concomitant]
     Active Substance: LISINOPRIL
  2. DUPIXENT [Suspect]
     Active Substance: DUPILUMAB
     Dosage: 300 MG, QOW
     Route: 058
     Dates: start: 2019
  3. AMLODIPINE BESYLATE. [Concomitant]
     Active Substance: AMLODIPINE BESYLATE
  4. CEPHALEXIN [CEFALEXIN] [Concomitant]
     Active Substance: CEPHALEXIN
  5. MONTELUKAST SODIUM. [Concomitant]
     Active Substance: MONTELUKAST SODIUM
  6. TOPROL XL [Concomitant]
     Active Substance: METOPROLOL SUCCINATE
  7. DUPIXENT [Suspect]
     Active Substance: DUPILUMAB
     Indication: URTICARIA
     Dosage: UNK
  8. TRIAMCINOLONE ACETONIDE. [Concomitant]
     Active Substance: TRIAMCINOLONE ACETONIDE
  9. EUCRISA [Concomitant]
     Active Substance: CRISABOROLE

REACTIONS (13)
  - Lip dry [Unknown]
  - Skin exfoliation [Unknown]
  - Product use in unapproved indication [Unknown]
  - Dry skin [Unknown]
  - Chapped lips [Unknown]
  - Eczema [Unknown]
  - Staphylococcal infection [Unknown]
  - Condition aggravated [Unknown]
  - Product dose omission [Unknown]
  - Lip exfoliation [Unknown]
  - Rash [Unknown]
  - Sepsis [Unknown]
  - Skin fissures [Unknown]

NARRATIVE: CASE EVENT DATE: 2018
